FAERS Safety Report 4502308-8 (Version None)
Quarter: 2004Q4

REPORT INFORMATION
  Report Type: 
  Country: None (occurrence: None)
  Receive Date: 20041116
  Receipt Date: 20040705
  Transmission Date: 20050328
  Serious: Yes (Disabling)
  Sender: FDA-Public Use
  Company Number: FR-GLAXOSMITHKLINE-B0337647A

PATIENT
  Age: 64 Year
  Sex: Female
  Weight: 57 kg

DRUGS (5)
  1. DEROXAT [Suspect]
     Indication: ILL-DEFINED DISORDER
     Dosage: 10MG PER DAY
     Route: 048
  2. CISPLATIN [Suspect]
     Indication: OVARIAN CANCER
     Route: 042
     Dates: start: 20001115, end: 20010227
  3. TAXOL [Suspect]
     Indication: OVARIAN CANCER
     Route: 042
     Dates: start: 20001115, end: 20010227
  4. LEXOMIL [Suspect]
     Indication: ILL-DEFINED DISORDER
     Dosage: 3MG PER DAY
     Route: 048
  5. TOPOTECAN [Concomitant]
     Indication: OVARIAN CANCER
     Dates: start: 20010326

REACTIONS (10)
  - ARTHRALGIA [None]
  - DYSAESTHESIA [None]
  - INSOMNIA [None]
  - LUMBAR RADICULOPATHY [None]
  - NEUROPATHY PERIPHERAL [None]
  - PAIN [None]
  - PARAESTHESIA [None]
  - PERIPHERAL SENSORY NEUROPATHY [None]
  - RESTLESS LEGS SYNDROME [None]
  - SENSORY DISTURBANCE [None]
